FAERS Safety Report 7514958-5 (Version None)
Quarter: 2011Q2

REPORT INFORMATION
  Report Type: 
  Country: None (occurrence: None)
  Receive Date: 20110601
  Receipt Date: 20110512
  Transmission Date: 20111010
  Serious: Yes (Other)
  Sender: FDA-Public Use
  Company Number: ES-AMGEN-ESPSP2011024798

PATIENT
  Age: 60 Year
  Sex: Male

DRUGS (3)
  1. NPLATE [Suspect]
     Indication: IDIOPATHIC THROMBOCYTOPENIC PURPURA
     Dosage: UNK
     Dates: start: 20090315
  2. CORTICOSTEROID NOS [Concomitant]
  3. RITUXIMAB [Concomitant]

REACTIONS (1)
  - BLAST CELL COUNT INCREASED [None]
